FAERS Safety Report 8336389-0 (Version None)
Quarter: 2012Q2

REPORT INFORMATION
  Report Type: 
  Country: None (occurrence: None)
  Receive Date: 20120501
  Receipt Date: 20120420
  Transmission Date: 20120825
  Serious: Yes (Other)
  Sender: FDA-Public Use
  Company Number: 2012SP021599

PATIENT
  Age: 62 Year
  Sex: Male

DRUGS (2)
  1. REBETOL [Suspect]
     Indication: HEPATITIS C
     Dosage: QD;PO
     Route: 048
     Dates: start: 20100710, end: 20110928
  2. PEGINTERFERON ALFA-2B [Suspect]
     Indication: HEPATITIS C
     Dosage: QW;SC
     Route: 058
     Dates: start: 20100710, end: 20110928

REACTIONS (2)
  - ACUTE PROMYELOCYTIC LEUKAEMIA [None]
  - THERAPEUTIC RESPONSE DECREASED [None]
